FAERS Safety Report 4610234-9 (Version None)
Quarter: 2005Q1

REPORT INFORMATION
  Report Type: 
  Country: None (occurrence: None)
  Receive Date: 20050316
  Receipt Date: 20050223
  Transmission Date: 20050727
  Serious: Yes (Disabling)
  Sender: FDA-Public Use
  Company Number: CH-SANOFI-SYNTHELABO-F01200500316

PATIENT
  Sex: Female

DRUGS (6)
  1. OXALIPLATIN [Suspect]
     Indication: COLORECTAL CANCER METASTATIC
     Route: 042
     Dates: start: 20050111, end: 20050111
  2. CAPECITABINE [Suspect]
     Dosage: 3300 MG (2 X 1000 MG/M2 PER DAY OF DAYS 1-15, Q3W)
     Route: 048
     Dates: start: 20050111, end: 20050125
  3. CETUXIMAB [Suspect]
     Route: 042
     Dates: start: 20050125, end: 20050125
  4. GASTROSIL [Concomitant]
     Dosage: UNK
     Route: 065
     Dates: start: 20050118, end: 20050125
  5. IMODIUM [Concomitant]
     Dosage: UNK
     Route: 065
     Dates: start: 20041221, end: 20050125
  6. BELOC ZOC [Concomitant]
     Dosage: UNK
     Route: 065
     Dates: start: 20040426

REACTIONS (2)
  - PARALYSIS [None]
  - PERIPHERAL MOTOR NEUROPATHY [None]
